FAERS Safety Report 10583556 (Version 1)
Quarter: 2014Q4

REPORT INFORMATION
  Report Type: Spontaneous
  Country: FR (occurrence: None)
  Receive Date: 20141112
  Receipt Date: 20141112
  Transmission Date: 20150529
  Serious: Yes (Hospitalization)
  Sender: FDA-Public Use
  Company Number: IMP_08090_2014

PATIENT
  Age: 63 Year
  Sex: Female

DRUGS (2)
  1. DIURETIC [Concomitant]
     Active Substance: UNSPECIFIED INGREDIENT
  2. METFORMIN HCL [Suspect]
     Active Substance: METFORMIN HYDROCHLORIDE
     Indication: TYPE 2 DIABETES MELLITUS

REACTIONS (6)
  - Lactic acidosis [None]
  - Respiratory disorder [None]
  - Coma scale abnormal [None]
  - Renal impairment [None]
  - Cardiovascular insufficiency [None]
  - Renal replacement therapy [None]
